FAERS Safety Report 18133955 (Version 2)
Quarter: 2020Q3

REPORT INFORMATION
  Report Type: Spontaneous
  Country: CZ (occurrence: CZ)
  Receive Date: 20200811
  Receipt Date: 20200812
  Transmission Date: 20201103
  Serious: Yes (Other)
  Sender: FDA-Public Use
  Company Number: CZ-PFIZER INC-2020280214

PATIENT
  Sex: Male
  Weight: 125 kg

DRUGS (2)
  1. TRAMADOL. [Concomitant]
     Active Substance: TRAMADOL
     Indication: ANALGESIC THERAPY
     Dosage: 500 MG, 1X/DAY (AROUND 500 MG/DAY)
  2. GABAPENTIN. [Suspect]
     Active Substance: GABAPENTIN
     Indication: ANALGESIC THERAPY
     Dosage: UNK

REACTIONS (2)
  - Mental impairment [Unknown]
  - Sedation [Unknown]
